FAERS Safety Report 8980219 (Version 2)
Quarter: 2013Q1

REPORT INFORMATION
  Report Type: Spontaneous
  Country: JP (occurrence: JP)
  Receive Date: 20121221
  Receipt Date: 20130308
  Transmission Date: 20140127
  Serious: Yes (Hospitalization)
  Sender: FDA-Public Use
  Company Number: JP-ASTRAZENECA-2012SE94051

PATIENT
  Age: 23442 Day
  Sex: Male
  Weight: 61 kg

DRUGS (1)
  1. NEXIUM [Suspect]
     Indication: GASTRIC ULCER
     Route: 048
     Dates: start: 20121107, end: 20121127

REACTIONS (1)
  - Interstitial lung disease [Not Recovered/Not Resolved]
